FAERS Safety Report 10674332 (Version 1)
Quarter: 2014Q4

REPORT INFORMATION
  Report Type: Spontaneous
  Country: US (occurrence: None)
  Receive Date: 20141223
  Receipt Date: 20141223
  Transmission Date: 20150529
  Serious: Yes (Disabling, Other)
  Sender: FDA-Public Use
  Company Number: None

PATIENT
  Age: 21 Year
  Sex: Male
  Weight: 61.24 kg

DRUGS (1)
  1. LEVOFLOXACIN. [Suspect]
     Active Substance: LEVOFLOXACIN
     Indication: PNEUMONIA
     Dosage: 1 TABLET ONCE DAILY TAKEN BY MOUTH
     Route: 048
     Dates: start: 20141005, end: 20141006

REACTIONS (5)
  - Atrophy [None]
  - Neuropathy peripheral [None]
  - Arthralgia [None]
  - Contraindicated drug administered [None]
  - Toxicity to various agents [None]

NARRATIVE: CASE EVENT DATE: 20141006
